FAERS Safety Report 23646692 (Version 3)
Quarter: 2024Q2

REPORT INFORMATION
  Report Type: Spontaneous
  Country: BE (occurrence: BE)
  Receive Date: 20240319
  Receipt Date: 20240417
  Transmission Date: 20240715
  Serious: Yes (Other)
  Sender: FDA-Public Use
  Company Number: BE-SA-SAC20240314000771

PATIENT

DRUGS (24)
  1. ARAVA [Suspect]
     Active Substance: LEFLUNOMIDE
     Dosage: 20 MG, QD
     Route: 065
     Dates: start: 20240217, end: 20240229
  2. ARAVA [Suspect]
     Active Substance: LEFLUNOMIDE
     Dosage: 10 MG, QD
     Route: 065
     Dates: start: 20240301, end: 20240316
  3. BUTYLSCOPOLAMINE BROMIDE [Suspect]
     Active Substance: BUTYLSCOPOLAMINE BROMIDE
     Dosage: UNK
  4. PLAQUENIL [Concomitant]
     Active Substance: HYDROXYCHLOROQUINE SULFATE
     Dosage: UNK
  5. NEXIUM I.V. [Concomitant]
     Active Substance: ESOMEPRAZOLE SODIUM
     Dosage: UNK
  6. MEDROL [Concomitant]
     Active Substance: METHYLPREDNISOLONE
  7. THYROXINE [Concomitant]
     Active Substance: LEVOTHYROXINE
     Dosage: 20MG
  8. SPIRONOLACTONE [Concomitant]
     Active Substance: SPIRONOLACTONE
     Indication: Hypertension
     Dosage: 25MG
  9. BISOPROLOL [Concomitant]
     Active Substance: BISOPROLOL\BISOPROLOL FUMARATE
     Indication: Hypertension
     Dosage: 25MG
  10. ACETAMINOPHEN [Concomitant]
     Active Substance: ACETAMINOPHEN
     Dosage: 25MG
  11. MOMETASONE [Concomitant]
     Active Substance: MOMETASONE
  12. MORPHINE [Concomitant]
     Active Substance: MORPHINE
  13. CODEINE [Concomitant]
     Active Substance: CODEINE
  14. SPIRAMYCIN [Concomitant]
     Active Substance: SPIRAMYCIN
  15. AMOXICILLIN [Concomitant]
     Active Substance: AMOXICILLIN
  16. ROCURONIUM [Concomitant]
     Active Substance: ROCURONIUM BROMIDE
  17. TRACRIUM [Concomitant]
     Active Substance: ATRACURIUM BESYLATE
  18. SUFENTANIL [Concomitant]
     Active Substance: SUFENTANIL
  19. ATRACURIUM BESYLATE [Concomitant]
     Active Substance: ATRACURIUM BESYLATE
  20. LEVOFLOXACIN [Concomitant]
     Active Substance: LEVOFLOXACIN
  21. CEFUROXIME [Concomitant]
     Active Substance: CEFUROXIME
  22. CHLORHEXIDINE [Concomitant]
     Active Substance: CHLORHEXIDINE\CHLORHEXIDINE GLUCONATE
  23. BENSERAZIDE\LEVODOPA [Concomitant]
     Active Substance: BENSERAZIDE\LEVODOPA
     Dosage: UNK
  24. NEXIUM [Concomitant]
     Active Substance: ESOMEPRAZOLE MAGNESIUM
     Dosage: 20 MG BID

REACTIONS (17)
  - Renal impairment [Unknown]
  - Pain in extremity [Unknown]
  - Abdominal discomfort [Not Recovered/Not Resolved]
  - Hepatic function abnormal [Unknown]
  - Oesophageal irritation [Unknown]
  - Blood triglycerides increased [Unknown]
  - Arthralgia [Unknown]
  - Osteoarthritis [Unknown]
  - Musculoskeletal stiffness [Unknown]
  - Arthritis [Unknown]
  - Compression fracture [Unknown]
  - Hypertension [Unknown]
  - Abdominal pain upper [Unknown]
  - Nausea [Unknown]
  - Fatigue [Not Recovered/Not Resolved]
  - Headache [Unknown]
  - Wrong technique in product usage process [Unknown]

NARRATIVE: CASE EVENT DATE: 20240101
